FAERS Safety Report 7560218-6 (Version None)
Quarter: 2011Q2

REPORT INFORMATION
  Report Type: 
  Country: None (occurrence: None)
  Receive Date: 20110621
  Receipt Date: 20110609
  Transmission Date: 20111010
  Serious: Yes (Other)
  Sender: FDA-Public Use
  Company Number: US-AMGEN-USASP2011029759

PATIENT
  Age: 52 Year
  Sex: Female

DRUGS (10)
  1. ZOMETA [Concomitant]
  2. IMITREX [Concomitant]
     Dosage: UNK MG, UNK
  3. LUPRON [Concomitant]
  4. XGEVA [Suspect]
     Indication: BREAST CANCER
     Dosage: UNK UNK, Q4WK
     Dates: start: 20110101
  5. EFFEXOR [Concomitant]
     Dosage: 2 MG, QD
  6. XGEVA [Suspect]
     Indication: METASTASES TO BONE
  7. ARIMIDEX [Concomitant]
     Dosage: 1 MG, QD
  8. MORPHINE [Concomitant]
     Dosage: 1 UNK, Q12H
  9. ANTIHISTAMINES [Concomitant]
     Dosage: 2 MG, QD
  10. SYNTHROID [Concomitant]

REACTIONS (7)
  - NEUROPATHY PERIPHERAL [None]
  - MUSCULAR WEAKNESS [None]
  - SENSITIVITY OF TEETH [None]
  - GINGIVAL PAIN [None]
  - MYALGIA [None]
  - HYPOAESTHESIA [None]
  - TOOTH FRACTURE [None]
